FAERS Safety Report 6069055-5 (Version None)
Quarter: 2009Q1

REPORT INFORMATION
  Report Type: 
  Country: None (occurrence: None)
  Receive Date: 20090206
  Receipt Date: 20090127
  Transmission Date: 20090719
  Serious: Yes (Hospitalization)
  Sender: FDA-Public Use
  Company Number: FR-ROCHE-611720

PATIENT
  Sex: Female

DRUGS (7)
  1. ROCEPHIN [Suspect]
     Route: 065
  2. TARGOCID [Interacting]
     Route: 048
  3. CORDARONE [Interacting]
     Route: 048
  4. DEROXAT [Interacting]
     Indication: DEPRESSION
     Route: 048
  5. VFEND [Interacting]
     Dosage: DOSAGE REGIMEN: 1 DOSE QD
     Route: 065
     Dates: start: 20081025, end: 20081027
  6. COUMADIN [Interacting]
     Indication: THROMBOPHLEBITIS
     Route: 048
     Dates: end: 20081027
  7. NEXIUM [Concomitant]
     Route: 048

REACTIONS (2)
  - DRUG INTERACTION [None]
  - INTERNATIONAL NORMALISED RATIO INCREASED [None]
